FAERS Safety Report 8990691 (Version 2)
Quarter: 2013Q1

REPORT INFORMATION
  Report Type: Spontaneous
  Country: US (occurrence: US)
  Receive Date: 20121228
  Receipt Date: 20130121
  Transmission Date: 20140127
  Serious: No
  Sender: FDA-Public Use
  Company Number: US-PFIZER INC-2012328291

PATIENT
  Age: 62 Year
  Sex: Female

DRUGS (1)
  1. SUTENT [Suspect]
     Indication: SOFT TISSUE CANCER
     Dosage: 37.5 MG (12.5 MG+25 MG), 1X/DAY
     Route: 048
     Dates: start: 20120919, end: 20121219

REACTIONS (3)
  - Off label use [Unknown]
  - Disease progression [Not Recovered/Not Resolved]
  - Soft tissue cancer [Not Recovered/Not Resolved]
